FAERS Safety Report 25065175 (Version 3)
Quarter: 2025Q4

REPORT INFORMATION
  Report Type: Report from Study
  Country: US (occurrence: US)
  Receive Date: 20250311
  Receipt Date: 20251013
  Transmission Date: 20260118
  Serious: Yes (Death)
  Sender: MERCK SHARP & DOHME LLC
  Company Number: US-009507513-2258015

PATIENT
  Age: 50 Year
  Sex: Male
  Weight: 75.886 kg

DRUGS (1)
  1. KEYTRUDA [Suspect]
     Active Substance: PEMBROLIZUMAB
     Indication: Product used for unknown indication
     Dosage: STRENGTH: 100 MG, INFUSE 200MG VIA IVPB OVER 30 MINUTES EVERY 21 DAYS
     Route: 042
     Dates: start: 20241024

REACTIONS (3)
  - Death [Fatal]
  - Insurance issue [Unknown]
  - Therapy cessation [Unknown]

NARRATIVE: CASE EVENT DATE: 20250329
